FAERS Safety Report 23839244 (Version 2)
Quarter: 2024Q2

REPORT INFORMATION
  Report Type: Report from Study
  Country: JP (occurrence: JP)
  Receive Date: 20240509
  Receipt Date: 20240604
  Transmission Date: 20240716
  Serious: Yes (Death, Hospitalization, Other)
  Sender: FDA-Public Use
  Company Number: JP-JNJFOC-20221158189

PATIENT
  Age: 87 Year
  Sex: Female

DRUGS (8)
  1. BOSENTAN [Suspect]
     Active Substance: BOSENTAN
     Indication: Skin ulcer
     Dosage: IN THE MORNING AND EVENING
     Route: 048
     Dates: start: 20190724, end: 20200915
  2. POLAPREZINC [Concomitant]
     Active Substance: POLAPREZINC
     Indication: Gastric ulcer
     Route: 048
     Dates: start: 20190724
  3. FUROSEMIDE [Concomitant]
     Active Substance: FUROSEMIDE
     Indication: Hypertension
     Route: 048
     Dates: start: 20190730
  4. CELECOXIB [Concomitant]
     Active Substance: CELECOXIB
     Indication: Back pain
     Route: 048
     Dates: start: 20190730
  5. ENALAPRIL MALEATE [Concomitant]
     Active Substance: ENALAPRIL MALEATE
     Indication: Hypertension
     Route: 048
     Dates: start: 20190730
  6. HYDROCHLOROTHIAZIDE\LOSARTAN POTASSIUM [Concomitant]
     Active Substance: HYDROCHLOROTHIAZIDE\LOSARTAN POTASSIUM
     Indication: Hypertension
     Dosage: 1 DOSAGE FORMS
     Route: 048
     Dates: start: 20190730
  7. MAGNESIUM OXIDE [Concomitant]
     Active Substance: MAGNESIUM OXIDE
     Indication: Constipation
     Dosage: 660MG IN THE MORNING,330MG IN THE AFTERNOON,660MG IN THE EVENING
     Route: 048
     Dates: start: 20190730
  8. BERAPROST SODIUM [Concomitant]
     Active Substance: BERAPROST SODIUM
     Indication: Systemic scleroderma
     Route: 048
     Dates: start: 20190812, end: 20210524

REACTIONS (3)
  - Death [Fatal]
  - Hepatic function abnormal [Not Recovered/Not Resolved]
  - Hypoxia [Recovering/Resolving]

NARRATIVE: CASE EVENT DATE: 20200114
